FAERS Safety Report 15091510 (Version 1)
Quarter: 2018Q2

REPORT INFORMATION
  Report Type: Report from Study
  Country: BE (occurrence: BE)
  Receive Date: 20180629
  Receipt Date: 20180629
  Transmission Date: 20180711
  Serious: Yes (Death)
  Sender: FDA-Public Use
  Company Number: PHHY2018BE032724

PATIENT

DRUGS (1)
  1. CGP 57148B [Suspect]
     Active Substance: IMATINIB MESYLATE
     Indication: CHRONIC GRAFT VERSUS HOST DISEASE
     Dosage: 200 MG, QD
     Route: 065

REACTIONS (1)
  - Death [Fatal]

NARRATIVE: CASE EVENT DATE: 20180404
